FAERS Safety Report 5788098-X (Version None)
Quarter: 2008Q2

REPORT INFORMATION
  Report Type: 
  Country: None (occurrence: None)
  Receive Date: 20080625
  Receipt Date: 20080616
  Transmission Date: 20081010
  Serious: Yes (Hospitalization)
  Sender: FDA-Public Use
  Company Number: BR-ABBOTT-08P-020-0458063-00

PATIENT
  Sex: Female

DRUGS (1)
  1. HUMIRA [Suspect]
     Indication: RHEUMATOID ARTHRITIS
     Dosage: 1 APPLICATION EVERY 14 DAYS
     Route: 058
     Dates: start: 20050501, end: 20080601

REACTIONS (4)
  - NEPHROLITHIASIS [None]
  - RENAL FAILURE [None]
  - URINARY TRACT INFECTION [None]
  - VOMITING [None]
